FAERS Safety Report 5567183-1 (Version None)
Quarter: 2007Q4

REPORT INFORMATION
  Report Type: 
  Country: None (occurrence: None)
  Receive Date: 20071219
  Receipt Date: 20071214
  Transmission Date: 20080405
  Serious: Yes (Hospitalization)
  Sender: FDA-Public Use
  Company Number: US-ELI_LILLY_AND_COMPANY-US200712003238

PATIENT
  Sex: Male

DRUGS (9)
  1. BYETTA [Suspect]
     Dosage: 5 UG, 2/D
     Route: 058
     Dates: start: 20060701, end: 20060801
  2. BYETTA [Suspect]
     Dosage: 10 UG, 2/D
     Route: 058
     Dates: start: 20060801
  3. LIPITOR [Concomitant]
  4. TOPROL-XL [Concomitant]
     Indication: BLOOD PRESSURE
  5. LISINOPRIL [Concomitant]
     Indication: BLOOD PRESSURE
  6. ASPIRIN [Concomitant]
  7. FOLIC ACID [Concomitant]
  8. PRILOSEC [Concomitant]
  9. METFORMIN HCL [Concomitant]
     Dates: end: 20070501

REACTIONS (3)
  - BLOOD PRESSURE ABNORMAL [None]
  - CORONARY ARTERY STENOSIS [None]
  - WEIGHT DECREASED [None]
